FAERS Safety Report 24660188 (Version 1)
Quarter: 2024Q4

REPORT INFORMATION
  Report Type: Spontaneous
  Country: CA (occurrence: CA)
  Receive Date: 20241125
  Receipt Date: 20241125
  Transmission Date: 20250115
  Serious: Yes (Other)
  Sender: DAIICHI
  Company Number: CA-ASTRAZENECA-202411CAN006488CA

PATIENT
  Weight: 78 kg

DRUGS (1)
  1. TRASTUZUMAB DERUXTECAN [Suspect]
     Active Substance: TRASTUZUMAB DERUXTECAN
     Indication: HER2 low breast cancer
     Dosage: 443 MG
     Route: 042

REACTIONS (3)
  - Interstitial lung disease [Unknown]
  - Pneumonitis [Unknown]
  - Pulmonary toxicity [Unknown]
